FAERS Safety Report 5264432-4 (Version None)
Quarter: 2007Q1

REPORT INFORMATION
  Report Type: 
  Country: None (occurrence: None)
  Receive Date: 20070309
  Receipt Date: 20070226
  Transmission Date: 20070707
  Serious: Yes (Life-Threatening, Hospitalization)
  Sender: FDA-Public Use
  Company Number: 2007SP000572

PATIENT
  Age: 56 Year
  Sex: Male
  Weight: 63.9572 kg

DRUGS (6)
  1. LUNESTA [Suspect]
     Indication: INSOMNIA
     Dosage: 3 MG;HS; ORAL; 6 MG; 1X; ORAL
     Route: 048
     Dates: start: 20070205, end: 20070201
  2. LUNESTA [Suspect]
     Indication: INSOMNIA
     Dosage: 3 MG;HS; ORAL; 6 MG; 1X; ORAL
     Route: 048
     Dates: end: 20070201
  3. CYMBALTA [Concomitant]
  4. WELLBUTRIN [Concomitant]
  5. PROVIGIL [Concomitant]
  6. ASPIRIN [Concomitant]

REACTIONS (8)
  - ALCOHOL USE [None]
  - COMPUTERISED TOMOGRAM ABNORMAL [None]
  - DRUG SCREEN POSITIVE [None]
  - HYPOVENTILATION [None]
  - LETHARGY [None]
  - LOSS OF CONSCIOUSNESS [None]
  - RESPIRATORY RATE DECREASED [None]
  - TROPONIN INCREASED [None]
